FAERS Safety Report 6375993-6 (Version None)
Quarter: 2009Q3

REPORT INFORMATION
  Report Type: 
  Country: None (occurrence: None)
  Receive Date: 20090921
  Receipt Date: 20090909
  Transmission Date: 20100115
  Serious: Yes (Other)
  Sender: FDA-Public Use
  Company Number: 2009AP003642

PATIENT
  Age: 40 Year
  Sex: Male

DRUGS (10)
  1. RISPERIDONE [Suspect]
  2. ABILIFY [Suspect]
     Indication: METABOLIC SYNDROME
     Dosage: 15 MG; QD PO
     Route: 048
     Dates: start: 20081001
  3. ABILIFY [Suspect]
     Indication: SCHIZOAFFECTIVE DISORDER
     Dosage: 15 MG; QD PO
     Route: 048
     Dates: start: 20081001
  4. DULOXETINE HYDROCHLORIDE [Suspect]
  5. MIRTAZAPINE [Suspect]
  6. QUETIAPINE FUMARATE [Suspect]
  7. VALPROATE SODIUM [Suspect]
  8. DRUG USED IN DIABETES (DRUG USED IN DIABETES) [Concomitant]
  9. VENLAFAXINE HCL [Concomitant]
  10. LITHIUM CARBONATE [Concomitant]

REACTIONS (3)
  - HYPOTHYROIDISM [None]
  - LIVER FUNCTION TEST ABNORMAL [None]
  - METABOLIC SYNDROME [None]
